FAERS Safety Report 5328834-X (Version None)
Quarter: 2007Q2

REPORT INFORMATION
  Report Type: 
  Country: None (occurrence: None)
  Receive Date: 20070518
  Receipt Date: 20070510
  Transmission Date: 20071010
  Serious: Yes (Hospitalization)
  Sender: FDA-Public Use
  Company Number: US-ELI_LILLY_AND_COMPANY-US200703002674

PATIENT
  Age: 62 Year
  Sex: Female
  Weight: 68.934 kg

DRUGS (22)
  1. VITAMIN B-12 [Concomitant]
     Indication: SUPPLEMENTATION THERAPY
     Dosage: 1000 UG, UNK
     Route: 030
     Dates: start: 20070219
  2. FOLIC ACID [Concomitant]
     Indication: SUPPLEMENTATION THERAPY
     Dosage: 1 MG, UNK
     Route: 048
     Dates: start: 20070219
  3. DEXAMETHASONE 0.5MG TAB [Concomitant]
     Dosage: 4 MG, OTHER
     Route: 048
     Dates: start: 20070225
  4. LOVENOX /01708202/ [Concomitant]
     Dosage: 70 MG, EACH EVENING
     Route: 058
  5. FLECAINIDE ACETATE [Concomitant]
     Dosage: 150 MG, 2/D
  6. LEVSINEX [Concomitant]
     Dosage: 0.375 UNK, 2/D
  7. MAGNESIUM OXIDE [Concomitant]
     Dosage: 200 MG, 2/D
  8. OXYCONTIN [Concomitant]
     Dosage: 20 MG, 2/D
     Route: 048
  9. PROTONIX [Concomitant]
     Dosage: 50 MG, DAILY (1/D)
  10. POTASSIUM ACETATE [Concomitant]
     Dosage: 20 MEQ, 2/D
  11. ADVAIR DISKUS 100/50 [Concomitant]
     Dosage: UNK D/F, 2/D
     Route: 055
  12. ATROVENT [Concomitant]
     Dosage: UNK, 4/D
     Route: 055
  13. ALBUTEROL [Concomitant]
     Dosage: UNK, OTHER
     Route: 055
  14. FUROSEMIDE [Concomitant]
     Dosage: 40 MG, OTHER
  15. ZOSYN [Concomitant]
     Dosage: 3.375 G, EVERY 6 HRS
     Route: 042
  16. LEVOFLOXACIN [Concomitant]
     Dosage: 500 MG, EACH EVENING
     Route: 042
  17. DULCOLAX [Concomitant]
     Dosage: UNK, AS NEEDED
  18. COLACE [Concomitant]
     Dosage: UNK, AS NEEDED
  19. MILK OF MAGNESIA [Concomitant]
     Dosage: UNK, AS NEEDED
  20. COMPAZINE /00013302/ [Concomitant]
     Dosage: UNK, AS NEEDED
  21. SENOKOT [Concomitant]
     Dosage: UNK, AS NEEDED
  22. ALIMTA [Suspect]
     Indication: NON-SMALL CELL LUNG CANCER STAGE IIIB
     Dosage: 637.5 MG, UNK
     Route: 042
     Dates: start: 20070226

REACTIONS (2)
  - DYSPNOEA [None]
  - SKIN REACTION [None]
